FAERS Safety Report 5638067-5 (Version None)
Quarter: 2008Q1

REPORT INFORMATION
  Report Type: 
  Country: None (occurrence: None)
  Receive Date: 20080221
  Receipt Date: 20080213
  Transmission Date: 20080703
  Serious: Yes (Hospitalization)
  Sender: FDA-Public Use
  Company Number: 2007SP023971

PATIENT
  Age: 56 Year
  Sex: Female
  Weight: 90.2658 kg

DRUGS (4)
  1. PEG-INTRON [Suspect]
     Indication: HEPATITIS B
     Dosage: SC
     Route: 058
     Dates: start: 20071031
  2. RIBAVIRIN [Suspect]
     Indication: HEPATITIS B
     Dosage: PO
     Route: 048
     Dates: start: 20071031
  3. ZOLOFT [Concomitant]
  4. PERCOCET [Concomitant]

REACTIONS (18)
  - ABASIA [None]
  - ABDOMINAL DISTENSION [None]
  - ABDOMINAL PAIN UPPER [None]
  - ARTHRALGIA [None]
  - ASTHMA [None]
  - BACK PAIN [None]
  - BRONCHITIS [None]
  - CHEST PAIN [None]
  - CHRONIC OBSTRUCTIVE PULMONARY DISEASE [None]
  - DEPRESSION [None]
  - DRY SKIN [None]
  - FATIGUE [None]
  - FLUID INTAKE REDUCED [None]
  - INFLUENZA LIKE ILLNESS [None]
  - ORAL DISORDER [None]
  - ORAL INTAKE REDUCED [None]
  - PNEUMONIA [None]
  - SKIN DISORDER [None]
